FAERS Safety Report 7360682-1 (Version None)
Quarter: 2011Q1

REPORT INFORMATION
  Report Type: 
  Country: None (occurrence: None)
  Receive Date: 20110318
  Receipt Date: 20080811
  Transmission Date: 20110831
  Serious: Yes (Other)
  Sender: FDA-Public Use
  Company Number: US-BAYER-200830430NA

PATIENT
  Sex: Male
  Weight: 104.31 kg

DRUGS (11)
  1. QUININE [Concomitant]
     Indication: MUSCLE SPASMS
     Dosage: UNK UNK, PRN
     Route: 048
  2. TRASYLOL [Suspect]
     Dosage: 10 (INITIAL TEST DOSE)
     Dates: start: 20030903, end: 20030903
  3. LOSARTAN POTASSIUM [Concomitant]
     Indication: PRODUCT USED FOR UNKNOWN INDICATION
     Dosage: 50 MG, QD
     Route: 048
  4. TRASYLOL [Suspect]
     Indication: CORONARY ARTERY BYPASS
     Dosage: 190 ML, UNK
     Route: 042
     Dates: start: 20030903, end: 20030903
  5. ACETYLSALICYLIC ACID SRT [Concomitant]
     Dosage: 81 MG, QD
     Route: 048
  6. NORVASC [Concomitant]
     Indication: PRODUCT USED FOR UNKNOWN INDICATION
     Dosage: 10 MG, QD
     Route: 048
  7. ZOCOR [Concomitant]
     Indication: PRODUCT USED FOR UNKNOWN INDICATION
     Dosage: 20 MG, QD
     Route: 048
  8. CARDIZEM [Concomitant]
     Indication: PRODUCT USED FOR UNKNOWN INDICATION
     Dosage: 160 MG, QD
     Route: 048
  9. MANNITOL [Concomitant]
     Dosage: UNK
     Dates: start: 20030903, end: 20030903
  10. LASIX [Concomitant]
     Indication: PRODUCT USED FOR UNKNOWN INDICATION
     Dosage: 40 MG, QD
     Route: 048
  11. TRASYLOL [Suspect]
     Dosage: 50 CC/HR PLUS PUMP PRIME
     Dates: start: 20030903, end: 20030903

REACTIONS (14)
  - RENAL INJURY [None]
  - UNEVALUABLE EVENT [None]
  - INJURY [None]
  - STRESS [None]
  - PAIN [None]
  - MULTI-ORGAN FAILURE [None]
  - RENAL IMPAIRMENT [None]
  - DEPRESSION [None]
  - RENAL FAILURE [None]
  - FEAR [None]
  - ANHEDONIA [None]
  - ASTHENIA [None]
  - ANXIETY [None]
  - FLUID RETENTION [None]
